FAERS Safety Report 21937325 (Version 4)
Quarter: 2023Q2

REPORT INFORMATION
  Report Type: Spontaneous
  Country: US (occurrence: US)
  Receive Date: 20230201
  Receipt Date: 20230605
  Transmission Date: 20230722
  Serious: Yes (Other)
  Sender: FDA-Public Use
  Company Number: US-BRISTOL-MYERS SQUIBB COMPANY-2023-015180

PATIENT
  Age: 72 Year
  Sex: Female

DRUGS (1)
  1. SPRYCEL [Suspect]
     Active Substance: DASATINIB
     Indication: Product used for unknown indication
     Route: 048

REACTIONS (5)
  - Allergic sinusitis [Unknown]
  - Secretion discharge [Unknown]
  - Headache [Unknown]
  - Seasonal allergy [Unknown]
  - Leukaemia [Unknown]

NARRATIVE: CASE EVENT DATE: 20230327
